FAERS Safety Report 12295114 (Version 1)
Quarter: 2016Q2

REPORT INFORMATION
  Report Type: Spontaneous
  Country: US (occurrence: US)
  Receive Date: 20160422
  Receipt Date: 20160422
  Transmission Date: 20160815
  Serious: No
  Sender: FDA-Public Use
  Company Number: US-PERRIGO-15US003456

PATIENT
  Sex: Female

DRUGS (1)
  1. PSEUDOEPHEDRINE HYDROCHLORIDE. [Suspect]
     Active Substance: PSEUDOEPHEDRINE HYDROCHLORIDE
     Indication: SINUS CONGESTION
     Dosage: 120 MG, THREE TIMES IN 15.5 HOURS
     Route: 048
     Dates: start: 20150326, end: 20150326

REACTIONS (5)
  - Feeling jittery [Unknown]
  - Headache [Unknown]
  - Nervousness [Unknown]
  - Insomnia [Unknown]
  - Inappropriate schedule of drug administration [Unknown]

NARRATIVE: CASE EVENT DATE: 20150326
